FAERS Safety Report 7496270-6 (Version None)
Quarter: 2011Q2

REPORT INFORMATION
  Report Type: 
  Country: None (occurrence: None)
  Receive Date: 20110523
  Receipt Date: 20110518
  Transmission Date: 20111010
  Serious: Yes (Other)
  Sender: FDA-Public Use
  Company Number: DE-PFIZER INC-2011102988

PATIENT
  Age: 70 Year
  Sex: Female
  Weight: 77 kg

DRUGS (9)
  1. ACTRAPID [Concomitant]
     Dosage: 16 IU, 3X/DAY
  2. GABAPENTIN [Concomitant]
     Dosage: 900 MG, 3X/DAY
  3. NOVALGIN [Concomitant]
     Dosage: 30 GTT, 4X/DAY
  4. SIMVASTATIN [Concomitant]
     Dosage: 10 MG, 1X/DAY
  5. PANTOPRAZOLE [Concomitant]
     Dosage: 40 MG, 1X/DAY
  6. LEVOTHYROXINE SODIUM [Concomitant]
     Dosage: 125 UG, 1X/DAY
  7. CARMEN [Concomitant]
     Dosage: 10 MG, 1X/DAY
  8. BISOPROLOL [Concomitant]
     Dosage: 5/12.5 MG, 1X/DAY
  9. SUNITINIB MALATE [Suspect]
     Indication: METASTATIC RENAL CELL CARCINOMA
     Dosage: 25 MG, 1X/DAY
     Route: 048
     Dates: start: 20110407, end: 20110424

REACTIONS (2)
  - OEDEMA [None]
  - JOINT SWELLING [None]
